FAERS Safety Report 17608950 (Version 2)
Quarter: 2020Q4

REPORT INFORMATION
  Report Type: Spontaneous
  Country: JP (occurrence: JP)
  Receive Date: 20200401
  Receipt Date: 20201103
  Transmission Date: 20210113
  Serious: Yes (Death, Other)
  Sender: FDA-Public Use
  Company Number: JP-ASTELLAS-2020JP005095

PATIENT
  Age: 79 Year
  Sex: Female

DRUGS (1)
  1. XOSPATA [Suspect]
     Active Substance: GILTERITINIB
     Indication: PRODUCT USED FOR UNKNOWN INDICATION
     Dosage: UNK UNK, UNKNOWN FREQ.
     Route: 048
     Dates: start: 20200312

REACTIONS (4)
  - Subdural haematoma [Fatal]
  - Liver disorder [Not Recovered/Not Resolved]
  - Platelet count decreased [Fatal]
  - Fall [Fatal]

NARRATIVE: CASE EVENT DATE: 202003
